FAERS Safety Report 24104499 (Version 1)
Quarter: 2024Q3

REPORT INFORMATION
  Report Type: Spontaneous
  Country: US (occurrence: US)
  Receive Date: 20240717
  Receipt Date: 20240717
  Transmission Date: 20241016
  Serious: Yes (Other)
  Sender: MYLAN
  Company Number: US-MYLANLABS-2024M1065748

PATIENT
  Age: 38 Year
  Sex: Female

DRUGS (9)
  1. HYDROCORTISONE [Suspect]
     Active Substance: HYDROCORTISONE\HYDROCORTISONE ACETATE
     Indication: Nervous system disorder prophylaxis
     Dosage: 20 MILLIGRAM, TID (3 TIMES DAILY)
     Route: 042
  2. HYDROCORTISONE [Suspect]
     Active Substance: HYDROCORTISONE\HYDROCORTISONE ACETATE
     Dosage: UNK, DOSE REDUCED
     Route: 042
  3. PREDNISONE [Suspect]
     Active Substance: PREDNISONE
     Indication: Nervous system disorder prophylaxis
     Dosage: UNK, LOW DOSE
     Route: 048
  4. PREDNISONE [Suspect]
     Active Substance: PREDNISONE
     Indication: Nervous system disorder prophylaxis
     Dosage: UNK, 10 DAYS COURSE
     Route: 065
  5. PREGABALIN [Suspect]
     Active Substance: PREGABALIN
     Indication: Nervous system disorder prophylaxis
     Dosage: UNK
     Route: 065
  6. CARBAMAZEPINE [Suspect]
     Active Substance: CARBAMAZEPINE
     Indication: Nervous system disorder prophylaxis
     Dosage: UNK
     Route: 065
  7. MEFLOQUINE [Concomitant]
     Active Substance: MEFLOQUINE
     Indication: Plasmodium falciparum infection
     Dosage: 750 MILLIGRAM
     Route: 065
  8. BACLOFEN [Concomitant]
     Active Substance: BACLOFEN
     Indication: Muscle spasms
     Dosage: UNK
     Route: 065
  9. BOTOX [Concomitant]
     Active Substance: ONABOTULINUMTOXINA
     Indication: Muscle relaxant therapy
     Dosage: UNK, EVERY 12 WEEKS, INJECTION
     Route: 065

REACTIONS (1)
  - Drug ineffective [Unknown]
